FAERS Safety Report 7572893-0 (Version None)
Quarter: 2011Q2

REPORT INFORMATION
  Report Type: 
  Country: None (occurrence: None)
  Receive Date: 20110627
  Receipt Date: 20110621
  Transmission Date: 20111010
  Serious: Yes (Death, Life-Threatening, Hospitalization)
  Sender: FDA-Public Use
  Company Number: GB-ELI_LILLY_AND_COMPANY-GB201104004973

PATIENT
  Age: 60 Year
  Sex: Male

DRUGS (8)
  1. DIAZEPAM [Concomitant]
     Indication: AGITATION
     Dosage: 5 MG, TID
     Route: 048
  2. CHLORDIAZEPOXIDE [Concomitant]
     Indication: AGITATION
     Dosage: 5 MG, TID
     Route: 048
  3. PROPRANOLOL [Concomitant]
     Indication: ANXIETY
     Dosage: 80 MG, QD
     Route: 048
  4. LEVOMEPROMAZINE [Concomitant]
     Indication: AGITATION
     Dosage: 50 MG, EVERY 6 HRS
     Route: 048
     Dates: start: 20110302
  5. OLANZAPINE [Suspect]
     Dosage: 20 MG, UNK
     Route: 048
  6. OLANZAPINE [Suspect]
     Indication: DYSKINESIA
     Dosage: 10 MG, QD
     Route: 048
     Dates: start: 20110302
  7. LEVOMEPROMAZINE [Concomitant]
     Dosage: 300 MG, QD
  8. MIRTAZAPINE [Concomitant]
     Indication: DEPRESSION
     Dosage: 45 MG, QD
     Route: 048

REACTIONS (4)
  - OFF LABEL USE [None]
  - LOWER RESPIRATORY TRACT INFECTION [None]
  - PULMONARY EMBOLISM [None]
  - HUNTINGTON'S DISEASE [None]
